FAERS Safety Report 16162534 (Version 1)
Quarter: 2019Q2

REPORT INFORMATION
  Report Type: Spontaneous
  Country: US (occurrence: US)
  Receive Date: 20190404
  Receipt Date: 20190404
  Transmission Date: 20190711
  Serious: Yes (Other)
  Sender: FDA-Public Use
  Company Number: None

PATIENT
  Age: 89 Year
  Sex: Female

DRUGS (7)
  1. SIMVASTATIN 20MG [Concomitant]
     Active Substance: SIMVASTATIN
     Dates: start: 20171107
  2. GABAPENTIN 300MG [Concomitant]
     Active Substance: GABAPENTIN
     Dates: start: 20171107
  3. VALSARTAN 160MG [Concomitant]
     Active Substance: VALSARTAN
     Dates: start: 20190128
  4. IBRANCE [Suspect]
     Active Substance: PALBOCICLIB
     Indication: BREAST CANCER
     Route: 048
     Dates: start: 20171108
  5. CALCIUM 500MG [Concomitant]
     Dates: start: 20171107
  6. HAIR SKIN AND NAILS TABLETS [Concomitant]
     Dates: start: 20181213
  7. LEVOTHYROXINE 0.05MG [Concomitant]
     Active Substance: LEVOTHYROXINE
     Dates: start: 20171107

REACTIONS (1)
  - Musculoskeletal pain [None]

NARRATIVE: CASE EVENT DATE: 20190404
